FAERS Safety Report 26124819 (Version 1)
Quarter: 2025Q4

REPORT INFORMATION
  Report Type: Spontaneous
  Country: US (occurrence: US)
  Receive Date: 20251205
  Receipt Date: 20251205
  Transmission Date: 20260117
  Serious: No
  Sender: THERATECHNOLOGIES
  Company Number: US-THERATECHNOLOGIES INC.-2025-THE-TES-000250

PATIENT

DRUGS (1)
  1. EGRIFTA SV [Suspect]
     Active Substance: TESAMORELIN ACETATE
     Indication: Lipodystrophy acquired
     Dosage: 1.4 MG, QD
     Route: 058
     Dates: start: 20250904, end: 20251105

REACTIONS (3)
  - Injection site paraesthesia [Recovered/Resolved]
  - Injection site bruising [Not Recovered/Not Resolved]
  - Therapeutic product effect incomplete [Not Recovered/Not Resolved]

NARRATIVE: CASE EVENT DATE: 20250901
